FAERS Safety Report 8047822-6 (Version None)
Quarter: 2012Q1

REPORT INFORMATION
  Report Type: 
  Country: None (occurrence: None)
  Receive Date: 20120116
  Receipt Date: 20120104
  Transmission Date: 20120608
  Serious: Yes (Other)
  Sender: FDA-Public Use
  Company Number: PHHY2012IE001131

PATIENT
  Sex: Female

DRUGS (1)
  1. VOLTAREN [Suspect]
     Indication: PERIARTHRITIS
     Dosage: 75 MG, BID
     Route: 048

REACTIONS (4)
  - PARAESTHESIA [None]
  - RASH PRURITIC [None]
  - ERYTHEMA [None]
  - SKIN INFECTION [None]
